FAERS Safety Report 24997705 (Version 1)
Quarter: 2025Q1

REPORT INFORMATION
  Report Type: Spontaneous
  Country: GB (occurrence: GB)
  Receive Date: 20250222
  Receipt Date: 20250222
  Transmission Date: 20250409
  Serious: Yes (Other)
  Sender: ACCORD
  Company Number: None

PATIENT
  Age: 87 Year
  Sex: Male

DRUGS (22)
  1. FUROSEMIDE [Suspect]
     Active Substance: FUROSEMIDE
     Indication: Product used for unknown indication
  2. RANOLAZINE [Suspect]
     Active Substance: RANOLAZINE
     Indication: Product used for unknown indication
  3. FAMOTIDINE [Suspect]
     Active Substance: FAMOTIDINE
     Indication: Product used for unknown indication
  4. FLUDROCORTISONE [Concomitant]
     Active Substance: FLUDROCORTISONE
  5. FOLIC ACID [Concomitant]
     Active Substance: FOLIC ACID
  6. MORPHINE [Concomitant]
     Active Substance: MORPHINE
  7. SODIUM PHOSPHATE [Concomitant]
     Active Substance: SODIUM PHOSPHATE
  8. SENNA [Concomitant]
     Active Substance: SENNOSIDES
  9. LACTULOSE [Concomitant]
     Active Substance: LACTULOSE
  10. MIDODRINE [Concomitant]
     Active Substance: MIDODRINE
  11. DIHYDROCODEINE [Concomitant]
     Active Substance: DIHYDROCODEINE
  12. NYSTATIN [Concomitant]
     Active Substance: NYSTATIN
  13. EDOXABAN [Concomitant]
     Active Substance: EDOXABAN
  14. NITROGLYCERIN [Concomitant]
     Active Substance: NITROGLYCERIN
  15. BISOPROLOL [Concomitant]
     Active Substance: BISOPROLOL
  16. ACETAMINOPHEN [Concomitant]
     Active Substance: ACETAMINOPHEN
  17. SODIUM BICARBONATE W/POTASSIUM CHLO [Concomitant]
  18. FERROUS FUMARATE [Concomitant]
     Active Substance: FERROUS FUMARATE
  19. FINASTERIDE [Concomitant]
     Active Substance: FINASTERIDE
  20. MIDAZOLAM [Concomitant]
     Active Substance: MIDAZOLAM
  21. GLYCOPYRRONIUM [Concomitant]
     Active Substance: GLYCOPYRRONIUM
  22. LEVOMEPROMAZINE [Concomitant]
     Active Substance: LEVOMEPROMAZINE

REACTIONS (3)
  - Ventricular tachycardia [Unknown]
  - Blood magnesium decreased [Unknown]
  - Blood potassium decreased [Unknown]
